FAERS Safety Report 9399471 (Version 1)
Quarter: 2013Q3

REPORT INFORMATION
  Report Type: Spontaneous
  Country: US (occurrence: None)
  Receive Date: 20130709
  Receipt Date: 20130709
  Transmission Date: 20140515
  Serious: Yes (Other)
  Sender: FDA-Public Use
  Company Number: 2013AP006358

PATIENT
  Age: 75 Year
  Sex: Male
  Weight: 66 kg

DRUGS (8)
  1. FERRIPROX [Suspect]
     Indication: MYELODYSPLASTIC SYNDROME
     Route: 048
     Dates: start: 20120628, end: 201306
  2. FERRIPROX [Suspect]
     Indication: HAEMOCHROMATOSIS
     Route: 048
     Dates: start: 20120628, end: 201306
  3. INSULIN [Suspect]
  4. FUROSEMIDE [Suspect]
  5. HYDRALAZINE [Suspect]
  6. KAYEXALATE [Suspect]
  7. NITROGLYCERIN [Suspect]
  8. MULTIVIT [Suspect]

REACTIONS (1)
  - Blood glucose increased [None]
